FAERS Safety Report 15118456 (Version 1)
Quarter: 2018Q3

REPORT INFORMATION
  Report Type: Spontaneous
  Country: GB (occurrence: GB)
  Receive Date: 20180708
  Receipt Date: 20180708
  Transmission Date: 20181010
  Serious: Yes (Other)
  Sender: FDA-Public Use
  Company Number: GB-BAXTER-2018BAX018582

PATIENT
  Age: 67 Year
  Sex: Female
  Weight: 59.2 kg

DRUGS (5)
  1. SODIUM CHLORIDE INTRAVENOUS INFUSION BP 0.9% W/V [Suspect]
     Active Substance: SODIUM CHLORIDE
     Indication: MEDICATION DILUTION
     Dosage: CYCLICAL INFUSION TREATMENT; APPROX. 22 ML OF THE COMPOUNDED PRODUCT (225 MG PACLITAXEL IN SODIUM CH
     Route: 042
     Dates: start: 20180618, end: 20180618
  2. SODIUM CHLORIDE INTRAVENOUS INFUSION BP 0.9% W/V [Suspect]
     Active Substance: SODIUM CHLORIDE
     Dosage: CYCLICAL INFUSION TREATMENT; RE?ADMINISTERED THE COMPOUNDED PRODUCT (225 MG PACLITAXEL IN SODIUM CHL
     Route: 042
     Dates: start: 201806
  3. PACLITAXEL. [Suspect]
     Active Substance: PACLITAXEL
     Indication: UTERINE CANCER
     Dosage: CYCLICAL INFUSION TREATMENT
     Route: 042
     Dates: start: 20180412
  4. PACLITAXEL. [Suspect]
     Active Substance: PACLITAXEL
     Dosage: CYCLICAL INFUSION TREATMENT; APPROX. 22 ML OF THE COMPOUNDED PRODUCT (225 MG PACLITAXEL IN SODIUM CH
     Route: 042
     Dates: start: 20180618, end: 20180618
  5. PACLITAXEL. [Suspect]
     Active Substance: PACLITAXEL
     Dosage: CYCLICAL INFUSION TREATMENT; RE?ADMINISTERED THE COMPOUNDED PRODUCT (225 MG PACLITAXEL IN SODIUM CHL
     Route: 042
     Dates: start: 201806

REACTIONS (3)
  - Nausea [Recovered/Resolved]
  - Vomiting [Recovered/Resolved]
  - Feeling hot [Unknown]

NARRATIVE: CASE EVENT DATE: 20180618
